FAERS Safety Report 10169154 (Version 1)
Quarter: 2014Q2

REPORT INFORMATION
  Report Type: Spontaneous
  Country: US (occurrence: US)
  Receive Date: 20140513
  Receipt Date: 20140513
  Transmission Date: 20141212
  Serious: No
  Sender: FDA-Public Use
  Company Number: US-TARO-2014P1001886

PATIENT
  Sex: Female
  Weight: 65.77 kg

DRUGS (5)
  1. CETIRIZINE HCL CHILDREN ORAL SOLUTION ALLERGY 1MG/ML (SUGARFREE GRAPE) [Suspect]
     Indication: NASOPHARYNGITIS
     Route: 048
     Dates: start: 20140227
  2. CETIRIZINE HCL CHILDREN ORAL SOLUTION ALLERGY 1MG/ML (SUGARFREE GRAPE) [Suspect]
     Indication: RHINORRHOEA
     Route: 048
     Dates: start: 20140227
  3. CETIRIZINE HCL CHILDREN ORAL SOLUTION ALLERGY 1MG/ML (SUGARFREE GRAPE) [Suspect]
     Indication: LACRIMATION INCREASED
     Route: 048
     Dates: start: 20140227
  4. CETIRIZINE HCL CHILDREN ORAL SOLUTION ALLERGY 1MG/ML (SUGARFREE GRAPE) [Suspect]
     Indication: EYE PRURITUS
     Route: 048
     Dates: start: 20140227
  5. SYNTHROID [Concomitant]

REACTIONS (1)
  - Drug ineffective [Not Recovered/Not Resolved]
